FAERS Safety Report 5184754-5 (Version None)
Quarter: 2006Q4

REPORT INFORMATION
  Report Type: 
  Country: None (occurrence: None)
  Receive Date: 20061220
  Receipt Date: 20060419
  Transmission Date: 20070319
  Serious: No
  Sender: FDA-Public Use
  Company Number: US-GLAXOSMITHKLINE-A0602437A

PATIENT
  Age: 79 Year
  Sex: Male

DRUGS (1)
  1. EQUATE NTS 21MG [Suspect]

REACTIONS (2)
  - HEADACHE [None]
  - INSOMNIA [None]
